FAERS Safety Report 6773146-0 (Version None)
Quarter: 2010Q2

REPORT INFORMATION
  Report Type: 
  Country: None (occurrence: None)
  Receive Date: 20100616
  Receipt Date: 20100607
  Transmission Date: 20101027
  Serious: Yes (Hospitalization, Disabling)
  Sender: FDA-Public Use
  Company Number: JP-ABBOTT-10P-087-0643665-00

PATIENT
  Sex: Male
  Weight: 71 kg

DRUGS (11)
  1. CLARITHROMYCIN [Suspect]
     Indication: NASOPHARYNGITIS
     Route: 048
     Dates: start: 20100406, end: 20100408
  2. CLARITHROMYCIN [Suspect]
     Indication: COUGH
  3. PELEX [Suspect]
     Indication: NASOPHARYNGITIS
     Dosage: 3 G DAILY
     Route: 048
     Dates: start: 20100401
  4. TRANSAMIN [Concomitant]
     Indication: NASOPHARYNGITIS
     Dosage: 750 MG DAILY
     Route: 048
     Dates: start: 20100401, end: 20100405
  5. TRANSAMIN [Concomitant]
     Indication: COUGH
  6. ANTOBRON [Concomitant]
     Indication: NASOPHARYNGITIS
     Dosage: 45 MG DAILY
     Route: 048
     Dates: start: 20100401, end: 20100405
  7. MUCODYNE [Concomitant]
     Indication: NASOPHARYNGITIS
     Route: 048
     Dates: start: 20100406, end: 20100408
  8. MUCODYNE [Concomitant]
     Indication: COUGH
  9. MEDICON [Concomitant]
     Indication: NASOPHARYNGITIS
     Dosage: 45 MG DAILY
     Route: 048
     Dates: start: 20100406, end: 20100408
  10. MEDICON [Concomitant]
     Indication: COUGH
  11. ASTOMIN [Concomitant]
     Indication: NASOPHARYNGITIS
     Route: 048
     Dates: start: 20100401

REACTIONS (1)
  - TUBULOINTERSTITIAL NEPHRITIS [None]
